FAERS Safety Report 23797489 (Version 1)
Quarter: 2024Q2

REPORT INFORMATION
  Report Type: Spontaneous
  Country: US (occurrence: US)
  Receive Date: 20240430
  Receipt Date: 20240430
  Transmission Date: 20240716
  Serious: Yes (Death, Other)
  Sender: FDA-Public Use
  Company Number: US-AMGEN-USASP2024082944

PATIENT

DRUGS (3)
  1. RITUXIMAB [Suspect]
     Active Substance: RITUXIMAB
     Indication: Transplant rejection
     Dosage: UNK
     Route: 065
  2. CARFILZOMIB [Suspect]
     Active Substance: CARFILZOMIB
     Indication: Transplant rejection
     Dosage: UNK
     Route: 065
  3. HUMAN IMMUNOGLOBULIN G [Concomitant]
     Active Substance: HUMAN IMMUNOGLOBULIN G
     Indication: Transplant rejection
     Dosage: UNK
     Route: 042

REACTIONS (13)
  - Death [Fatal]
  - Pneumatosis intestinalis [Unknown]
  - Acute pulmonary oedema [Unknown]
  - Leukopenia [Unknown]
  - Acute kidney injury [Unknown]
  - Pulmonary alveolar haemorrhage [Unknown]
  - Large intestine perforation [Unknown]
  - Thrombocytopenia [Unknown]
  - Pancytopenia [Unknown]
  - Transient ischaemic attack [Recovered/Resolved]
  - Nausea [Unknown]
  - Vomiting [Unknown]
  - Off label use [Unknown]
